FAERS Safety Report 19457865 (Version 1)
Quarter: 2021Q2

REPORT INFORMATION
  Report Type: Spontaneous
  Country: US (occurrence: US)
  Receive Date: 20210624
  Receipt Date: 20210624
  Transmission Date: 20210717
  Serious: No
  Sender: FDA-Public Use
  Company Number: US-DECIPHERA PHARMACEUTICALS LLC-2021US000272

PATIENT
  Age: 50 Year
  Sex: Male

DRUGS (1)
  1. QINLOCK [Suspect]
     Active Substance: RIPRETINIB
     Indication: NEOPLASM MALIGNANT
     Dosage: 2 DOSAGE FORM, QD
     Route: 048
     Dates: start: 20210322

REACTIONS (3)
  - Blister [Unknown]
  - Prescribed underdose [Unknown]
  - Dry skin [Unknown]

NARRATIVE: CASE EVENT DATE: 202103
